FAERS Safety Report 21120944 (Version 1)
Quarter: 2022Q3

REPORT INFORMATION
  Report Type: Report from Study
  Country: US (occurrence: US)
  Receive Date: 20220722
  Receipt Date: 20220722
  Transmission Date: 20221027
  Serious: No
  Sender: FDA-Public Use
  Company Number: US-MIRM-000389

PATIENT
  Age: 12 Year
  Sex: Female

DRUGS (4)
  1. LIVMARLI [Suspect]
     Active Substance: MARALIXIBAT CHLORIDE
     Indication: Alagille syndrome
     Dosage: ONGOING
     Route: 048
     Dates: start: 202204
  2. LIVMARLI [Suspect]
     Active Substance: MARALIXIBAT CHLORIDE
     Indication: Alagille syndrome
     Dosage: STARTED ON 17MAR2022 OR 18MAR2022 AND TOOK THIS DOSE FOR ONE WEEK
     Route: 048
     Dates: start: 202203, end: 202203
  3. LIVMARLI [Suspect]
     Active Substance: MARALIXIBAT CHLORIDE
     Indication: Alagille syndrome
     Dosage: PATIENT TOOK ONLY 1 DOSE OF 0.75 ML
     Route: 048
     Dates: start: 202203, end: 202203
  4. LIVMARLI [Suspect]
     Active Substance: MARALIXIBAT CHLORIDE
     Indication: Alagille syndrome
     Dosage: DOSE REDUCED BACK TO 0.9 ML AND PATIENT TOOK IT FOR 2.5 WEEKS
     Route: 048
     Dates: start: 202203, end: 202204

REACTIONS (1)
  - Abdominal pain [Recovered/Resolved]

NARRATIVE: CASE EVENT DATE: 20220301
